FAERS Safety Report 4435974-6 (Version None)
Quarter: 2004Q3

REPORT INFORMATION
  Report Type: 
  Country: None (occurrence: None)
  Receive Date: 20040826
  Receipt Date: 20040816
  Transmission Date: 20050211
  Serious: Yes (Other)
  Sender: FDA-Public Use
  Company Number: 001531

PATIENT
  Age: 48 Year
  Sex: Female
  Weight: 79.4 kg

DRUGS (1)
  1. CENESTIN [Suspect]
     Indication: HORMONE REPLACEMENT THERAPY
     Dosage: 1.00 TABLET, QD, ORAL
     Route: 048
     Dates: start: 20040101

REACTIONS (3)
  - CHOLELITHIASIS [None]
  - DISEASE RECURRENCE [None]
  - HEPATIC STEATOSIS [None]
